FAERS Safety Report 21226661 (Version 1)
Quarter: 2022Q3

REPORT INFORMATION
  Report Type: Spontaneous
  Country: US (occurrence: US)
  Receive Date: 20220818
  Receipt Date: 20220818
  Transmission Date: 20221027
  Serious: Yes (Other)
  Sender: FDA-Public Use
  Company Number: US-AMGEN-USASP2022137641

PATIENT
  Age: 74 Year
  Sex: Male

DRUGS (10)
  1. PEGFILGRASTIM [Suspect]
     Active Substance: PEGFILGRASTIM
     Indication: Prophylaxis
     Dosage: 6 MILLIGRAM (2 DOSE)
     Route: 065
  2. VINCRISTINE [Concomitant]
     Active Substance: VINCRISTINE
     Dosage: 2 MILLIGRAM
     Route: 042
     Dates: start: 201802, end: 201805
  3. DOXORUBICIN [Concomitant]
     Active Substance: DOXORUBICIN
     Dosage: 60 MILLIGRAM/SQ. METER
     Dates: start: 201802, end: 201805
  4. CYCLOPHOSPHAMIDE [Concomitant]
     Active Substance: CYCLOPHOSPHAMIDE
     Dosage: 1000 MILLIGRAM/SQ. METER
     Dates: start: 201802, end: 201805
  5. IFOSFAMIDE [Concomitant]
     Active Substance: IFOSFAMIDE
     Dosage: 1800 MILLIGRAM/SQ. METER
     Dates: start: 201802, end: 201805
  6. ETOPOSIDE [Concomitant]
     Active Substance: ETOPOSIDE
     Dosage: 1800 MILLIGRAM/SQ. METER
     Dates: start: 201802, end: 201805
  7. TOPOTECAN [Concomitant]
     Active Substance: TOPOTECAN HYDROCHLORIDE
     Dosage: 1 MILLIGRAM/SQ. METER
     Dates: start: 201805, end: 201808
  8. IRINOTECAN [Concomitant]
     Active Substance: IRINOTECAN
     Dosage: 40 MILLIGRAM/SQ. METER
  9. TEMOZOLOMIDE [Concomitant]
     Active Substance: TEMOZOLOMIDE
     Dosage: 1000 MILLIGRAM/SQ. METER
  10. REGORAFENIB [Concomitant]
     Active Substance: REGORAFENIB
     Dosage: UNK

REACTIONS (4)
  - Ewing^s sarcoma metastatic [Unknown]
  - Ewing^s sarcoma recurrent [Unknown]
  - Hyperbilirubinaemia [Unknown]
  - Thrombocytopenia [Unknown]

NARRATIVE: CASE EVENT DATE: 20190101
